FAERS Safety Report 12230188 (Version 1)
Quarter: 2016Q1

REPORT INFORMATION
  Report Type: Spontaneous
  Country: US (occurrence: None)
  Receive Date: 20160331
  Receipt Date: 20160331
  Transmission Date: 20160526
  Serious: No
  Sender: FDA-Public Use
  Company Number: None

PATIENT
  Age: 67 Year
  Sex: Female

DRUGS (8)
  1. LETROZOLE. [Concomitant]
     Active Substance: LETROZOLE
  2. PROMETHAZINE [Concomitant]
     Active Substance: PROMETHAZINE\PROMETHAZINE HYDROCHLORIDE
  3. PANTOPRAZOLE [Concomitant]
     Active Substance: PANTOPRAZOLE SODIUM
  4. ONDANSETRON [Concomitant]
     Active Substance: ONDANSETRON
  5. PRILOSEC [Concomitant]
     Active Substance: OMEPRAZOLE MAGNESIUM
  6. FAMOTIDINE. [Concomitant]
     Active Substance: FAMOTIDINE
  7. METOCLOPRAM [Concomitant]
     Active Substance: METOCLOPRAMIDE
  8. IBRANCE [Suspect]
     Active Substance: PALBOCICLIB
     Indication: BREAST CANCER
     Dosage: 125MG QD FOR 21DS ORAL
     Route: 048
     Dates: start: 20160121

REACTIONS (6)
  - Epistaxis [None]
  - Nausea [None]
  - Weight decreased [None]
  - Parosmia [None]
  - Neuropathy peripheral [None]
  - Vomiting [None]

NARRATIVE: CASE EVENT DATE: 20160129
